FAERS Safety Report 17412786 (Version 1)
Quarter: 2020Q1

REPORT INFORMATION
  Report Type: Spontaneous
  Country: US (occurrence: US)
  Receive Date: 20200212
  Receipt Date: 20200212
  Transmission Date: 20200409
  Serious: Yes (Disabling)
  Sender: FDA-Public Use
  Company Number: None

PATIENT
  Age: 63 Year
  Sex: Female
  Weight: 99 kg

DRUGS (8)
  1. AMLODOPINE, [Concomitant]
  2. FOLTRIN (IRON) [Concomitant]
  3. CALCIUM [Concomitant]
     Active Substance: CALCIUM
  4. C-PAP (SINCE 1998) [Concomitant]
  5. MULTI VITAMIN, [Concomitant]
  6. ZICAM COLD REMEDY [Suspect]
     Active Substance: HOMEOPATHICS\ZINC ACETATE\ZINC GLUCONATE
     Indication: NASOPHARYNGITIS
     Dosage: ?          QUANTITY:1 SWAB;OTHER FREQUENCY:Q3H;OTHER ROUTE:SWAB NASAL PASSAGES 3X EACH?
     Dates: start: 20190401, end: 20190501
  7. FLUOXETINE [Concomitant]
     Active Substance: FLUOXETINE HYDROCHLORIDE
  8. ALLEGRA [Concomitant]
     Active Substance: FEXOFENADINE HYDROCHLORIDE

REACTIONS (5)
  - Parosmia [None]
  - Product use complaint [None]
  - Taste disorder [None]
  - Nerve injury [None]
  - Olfactory nerve disorder [None]
